FAERS Safety Report 7384819-3 (Version None)
Quarter: 2011Q1

REPORT INFORMATION
  Report Type: 
  Country: None (occurrence: None)
  Receive Date: 20110330
  Receipt Date: 20100616
  Transmission Date: 20110831
  Serious: Yes (Hospitalization, Other)
  Sender: FDA-Public Use
  Company Number: US-BAYER-201013245NA

PATIENT
  Sex: Female
  Weight: 73 kg

DRUGS (7)
  1. ZOLOFT [Concomitant]
     Route: 048
  2. KLONOPIN [Concomitant]
     Dosage: 0.5 MG, UNK
     Route: 048
  3. INDOMETHACIN [Concomitant]
     Dosage: 75 MG, UNK
     Route: 048
  4. TRAZODONE [Concomitant]
     Dosage: 50 MG, UNK
     Route: 048
  5. CYMBALTA [Concomitant]
     Dosage: 60 MG, UNK
     Route: 048
  6. YAZ [Suspect]
     Indication: HORMONE REPLACEMENT THERAPY
     Dosage: UNK
     Dates: start: 20071001, end: 20080301
  7. YASMIN [Suspect]
     Indication: ORAL CONTRACEPTION
     Route: 048
     Dates: start: 20071001

REACTIONS (2)
  - DEEP VEIN THROMBOSIS [None]
  - THROMBOSIS [None]
